FAERS Safety Report 15010475 (Version 1)
Quarter: 2018Q2

REPORT INFORMATION
  Report Type: Spontaneous
  Country: US (occurrence: US)
  Receive Date: 20180528
  Receipt Date: 20180528
  Transmission Date: 20180711
  Serious: Yes (Other)
  Sender: FDA-Public Use
  Company Number: None

PATIENT
  Age: 42 Year
  Sex: Female
  Weight: 63 kg

DRUGS (1)
  1. ZYGENERICS LAMOTRIGINE GENERIC FOR LAMICTAL [Suspect]
     Active Substance: LAMOTRIGINE
     Indication: BIPOLAR DISORDER
     Dosage: ?          QUANTITY:2 TABLET(S);?
     Route: 048
     Dates: start: 20180426, end: 20180528

REACTIONS (5)
  - Drug ineffective [None]
  - Product substitution issue [None]
  - Major depression [None]
  - Anxiety [None]
  - Affective disorder [None]

NARRATIVE: CASE EVENT DATE: 20180426
